FAERS Safety Report 9776448 (Version 1)
Quarter: 2013Q4

REPORT INFORMATION
  Report Type: Spontaneous
  Country: US (occurrence: US)
  Receive Date: 20131220
  Receipt Date: 20131220
  Transmission Date: 20140711
  Serious: No
  Sender: FDA-Public Use
  Company Number: US-BIOGENIDEC-2013BI121082

PATIENT
  Sex: Female

DRUGS (15)
  1. TECFIDERA [Suspect]
     Indication: MULTIPLE SCLEROSIS
     Route: 048
     Dates: start: 20130906
  2. CALCIUM CARBONATE [Concomitant]
  3. CRANBERRY [Concomitant]
  4. FISH OIL [Concomitant]
  5. PEPCID [Concomitant]
  6. VITAMIN B12 [Concomitant]
  7. VITAMIN C [Concomitant]
  8. VITAMIN D [Concomitant]
  9. VITMAIN E [Concomitant]
  10. ZOLOFT [Concomitant]
  11. LIPITOR [Concomitant]
  12. EFFEXOR [Concomitant]
  13. POTASSIUM [Concomitant]
  14. TRIAMTERENE-HCTZ [Concomitant]
  15. DIOVAN [Concomitant]

REACTIONS (1)
  - Oral mucosal blistering [Unknown]
